FAERS Safety Report 13328994 (Version 1)
Quarter: 2017Q1

REPORT INFORMATION
  Report Type: Spontaneous
  Country: US (occurrence: US)
  Receive Date: 20170310
  Receipt Date: 20170310
  Transmission Date: 20170428
  Serious: No
  Sender: FDA-Public Use
  Company Number: None

PATIENT
  Age: 62 Year
  Sex: Female

DRUGS (1)
  1. HUMIRA [Suspect]
     Active Substance: ADALIMUMAB
     Indication: CROHN^S DISEASE
     Dosage: 40MG EVERY 14 DAYS
     Route: 058
     Dates: start: 20161001

REACTIONS (4)
  - Bacterial infection [None]
  - Injection site scar [None]
  - Injection site rash [None]
  - Viral infection [None]

NARRATIVE: CASE EVENT DATE: 20170301
